FAERS Safety Report 7581693-7 (Version None)
Quarter: 2011Q2

REPORT INFORMATION
  Report Type: 
  Country: None (occurrence: None)
  Receive Date: 20110629
  Receipt Date: 20110622
  Transmission Date: 20111010
  Serious: Yes (Hospitalization, Disabling)
  Sender: FDA-Public Use
  Company Number: FR-PFIZER INC-2011069231

PATIENT
  Age: 26 Year
  Sex: Female
  Weight: 74 kg

DRUGS (4)
  1. TRIPHASIL-21 [Suspect]
     Indication: ORAL CONTRACEPTION
     Dosage: 80 MG, SINGLE
     Route: 048
     Dates: start: 20080601, end: 20091201
  2. HUMIRA [Suspect]
     Indication: PSORIASIS
     Dosage: 40 MG, TWICE A WEEK
     Route: 058
     Dates: start: 20090801, end: 20091124
  3. ACETAMINOPHEN [Concomitant]
     Indication: HEADACHE
     Dosage: ON DEMAND
  4. KETOPROFEN [Concomitant]
     Indication: HEADACHE
     Dosage: ON DEMAND

REACTIONS (3)
  - SPINAL CORD INFARCTION [None]
  - PARESIS [None]
  - PARAPLEGIA [None]
